FAERS Safety Report 9393341 (Version 7)
Quarter: 2013Q4

REPORT INFORMATION
  Report Type: Spontaneous
  Country: FR (occurrence: FR)
  Receive Date: 20130710
  Receipt Date: 20131203
  Transmission Date: 20140711
  Serious: Yes (Hospitalization)
  Sender: FDA-Public Use
  Company Number: FR-PFIZER INC-2013199665

PATIENT
  Age: 80 Year
  Sex: Male

DRUGS (15)
  1. TAZOCILLINE [Suspect]
     Indication: EAR INFECTION
     Dosage: 12G/1.5 G/DAILY
     Route: 042
     Dates: start: 20130515, end: 20130619
  2. TAHOR [Suspect]
     Indication: HYPERTENSION
     Dosage: 80 MG, 1X/DAY (IN THE EVENING)
     Route: 048
     Dates: start: 2010
  3. PANTOPRAZOLE [Suspect]
     Indication: GASTROOESOPHAGEAL REFLUX DISEASE
     Dosage: 20 MG, 1X/DAY (IN THE EVENING)
     Route: 048
     Dates: start: 20120622, end: 20130506
  4. PANTOPRAZOLE [Suspect]
     Dosage: 20 MG, 1X/DAY (IN THE EVENING)
     Route: 048
     Dates: start: 20130524, end: 20130624
  5. CIFLOX [Suspect]
     Indication: EAR INFECTION
     Dosage: 500 MG, 3X/DAY
     Route: 048
     Dates: start: 20130515, end: 20130524
  6. KARDEGIC [Suspect]
     Indication: MYOCARDIAL INFARCTION
     Dosage: 75 MG, 1X/DAY (IN THE MORNING)
     Route: 048
     Dates: start: 2010
  7. TEMERIT [Suspect]
     Indication: HYPERTENSION
     Dosage: 2.5 MG, 1X/DAY
     Route: 048
     Dates: start: 2010
  8. OMACOR [Suspect]
     Indication: MYOCARDIAL INFARCTION
     Dosage: 1 DF, 1X/DAY
     Route: 048
     Dates: start: 2010
  9. INEXIUM [Suspect]
     Indication: GASTROOESOPHAGEAL REFLUX DISEASE
     Dosage: 1 DF, 1X/DAY
     Route: 048
     Dates: start: 20130506, end: 20130524
  10. OFLOCET [Suspect]
     Dosage: UNK
     Dates: start: 20130524, end: 20130612
  11. AUGMENTIN [Suspect]
     Dosage: 1 G, 3X/DAY
     Dates: start: 20130417
  12. AUGMENTIN [Suspect]
     Dosage: UNK
     Dates: start: 20130426
  13. DIFFU K [Concomitant]
     Dosage: 1 DF, DAILY
  14. TRAMADOL - SLOW RELEASE [Concomitant]
     Dosage: 100 MG, DAILY
  15. TRAMADOL [Concomitant]
     Dosage: 50 MG, AS NEEDED

REACTIONS (4)
  - Drug reaction with eosinophilia and systemic symptoms [Unknown]
  - Wrong drug administered [Unknown]
  - Renal failure acute [Unknown]
  - Hepatic failure [Unknown]
